FAERS Safety Report 18443056 (Version 2)
Quarter: 2020Q4

REPORT INFORMATION
  Report Type: Spontaneous
  Country: US (occurrence: US)
  Receive Date: 20201029
  Receipt Date: 20201119
  Transmission Date: 20210114
  Serious: Yes (Other)
  Sender: FDA-Public Use
  Company Number: US-SA-2020SA299729

PATIENT

DRUGS (4)
  1. LANTUS SOLOSTAR [Suspect]
     Active Substance: INSULIN GLARGINE
     Indication: TYPE 2 DIABETES MELLITUS
     Dosage: 11 IU, HS
     Route: 065
     Dates: start: 2017, end: 20201109
  2. HUMALOG [Suspect]
     Active Substance: INSULIN LISPRO
     Dosage: 6 UNITS AT BREAKFAST AND 8 UNITS AT LUNCH
     Route: 065
     Dates: start: 20201111
  3. HUMALOG [Suspect]
     Active Substance: INSULIN LISPRO
     Indication: TYPE 2 DIABETES MELLITUS
     Dosage: 75/25 AT MEALS
     Route: 065
     Dates: start: 20201109, end: 20201111
  4. GLIMEPIRIDE. [Concomitant]
     Active Substance: GLIMEPIRIDE
     Dosage: UNK
     Route: 065
     Dates: end: 20201109

REACTIONS (9)
  - Diabetes mellitus inadequate control [Unknown]
  - Weight decreased [Unknown]
  - Drug ineffective [Unknown]
  - Exercise lack of [Unknown]
  - Dyspnoea [Unknown]
  - Malaise [Unknown]
  - Gait disturbance [Unknown]
  - Nervousness [Unknown]
  - Glycosylated haemoglobin increased [Unknown]

NARRATIVE: CASE EVENT DATE: 2020
